FAERS Safety Report 5020446-0 (Version None)
Quarter: 2006Q2

REPORT INFORMATION
  Report Type: 
  Country: None (occurrence: None)
  Receive Date: 20060606
  Receipt Date: 20060526
  Transmission Date: 20061013
  Serious: Yes (Other)
  Sender: FDA-Public Use
  Company Number: 430047K0USA

PATIENT
  Age: 53 Year
  Sex: Male
  Weight: 73.4827 kg

DRUGS (6)
  1. NOVANTRONE [Suspect]
     Indication: MULTIPLE SCLEROSIS
     Dosage: NOT REPORTED, 1 IN 1 MONTHS
     Dates: start: 20051101
  2. CELEBREX [Concomitant]
  3. SKELAXIN [Concomitant]
  4. ALLEGRA (FEXODENADINE HYDROCHLORIDE) [Concomitant]
  5. OXYCONTIN [Concomitant]
  6. HYDROCODONE AND ACETAMINOPHEN (VICODIN) [Concomitant]

REACTIONS (1)
  - EJECTION FRACTION DECREASED [None]
